FAERS Safety Report 10164808 (Version 1)
Quarter: 2014Q2

REPORT INFORMATION
  Report Type: Spontaneous
  Country: US (occurrence: US)
  Receive Date: 20140510
  Receipt Date: 20140510
  Transmission Date: 20141212
  Serious: No
  Sender: FDA-Public Use
  Company Number: US-BRISTOL-MYERS SQUIBB COMPANY-20187902

PATIENT
  Age: 59 Year
  Sex: Female
  Weight: 107.93 kg

DRUGS (3)
  1. BYDUREON [Suspect]
     Indication: TYPE 2 DIABETES MELLITUS
  2. LEVEMIR [Suspect]
     Dosage: 1DF= 40 UUITS NOS?IN EVENING
  3. NOVOLOG [Suspect]
     Dosage: 1DF: 15UNITS NOS?WITH EACH MEAL

REACTIONS (2)
  - Blood glucose increased [Unknown]
  - Drug administration error [Unknown]
